FAERS Safety Report 21592008 (Version 1)
Quarter: 2022Q4

REPORT INFORMATION
  Report Type: Spontaneous
  Country: US (occurrence: US)
  Receive Date: 20221114
  Receipt Date: 20221114
  Transmission Date: 20230113
  Serious: No
  Sender: FDA-Public Use
  Company Number: US-AMGEN-USASP2022192843

PATIENT
  Age: 88 Year
  Sex: Female

DRUGS (3)
  1. PROLIA [Suspect]
     Active Substance: DENOSUMAB
     Indication: Osteoporosis postmenopausal
     Dosage: UNK, Q6MO
     Route: 065
     Dates: start: 20220713
  2. TRAMADOL [Concomitant]
     Active Substance: TRAMADOL
     Indication: Arthritis
     Dosage: 50 MILLIGRAM, QD (IN A.M.)
     Route: 065
  3. TYLENOL [Concomitant]
     Active Substance: ACETAMINOPHEN
     Indication: Arthritis
     Dosage: 1000 MILLIGRAM, BID (1 AND 8 P.M.)

REACTIONS (4)
  - Pelvic pain [Recovered/Resolved]
  - Scoliosis [Unknown]
  - Spondylolisthesis [Unknown]
  - Spinal osteoarthritis [Unknown]

NARRATIVE: CASE EVENT DATE: 20220717
